FAERS Safety Report 19132263 (Version 2)
Quarter: 2022Q2

REPORT INFORMATION
  Report Type: Report from Study
  Country: US (occurrence: US)
  Receive Date: 20210413
  Receipt Date: 20220513
  Transmission Date: 20220721
  Serious: No
  Sender: FDA-Public Use
  Company Number: US-TEVA-2021-US-1899002

PATIENT
  Age: 56 Year
  Sex: Female
  Weight: 68.04 kg

DRUGS (1)
  1. FENTANYL CITRATE [Suspect]
     Active Substance: FENTANYL CITRATE
     Indication: Pain
     Dosage: PREVIOUSLY ON THIS MEDICATION 8-9 YEARS AGO BEFORE RESTARTING IT A YEAR AGO
     Route: 065

REACTIONS (2)
  - Pain [Unknown]
  - Stress [Unknown]
